FAERS Safety Report 9333434 (Version 3)
Quarter: 2013Q4

REPORT INFORMATION
  Report Type: Spontaneous
  Country: US (occurrence: US)
  Receive Date: 20130606
  Receipt Date: 20131121
  Transmission Date: 20140711
  Serious: Yes (Hospitalization, Other)
  Sender: FDA-Public Use
  Company Number: US-B.I. PHARMACEUTICALS,INC./RIDGEFIELD-2013-BI-15628BP

PATIENT
  Age: 69 Year
  Sex: Male
  Weight: 113.4 kg

DRUGS (15)
  1. PRADAXA [Suspect]
     Indication: ANTICOAGULANT THERAPY
     Dosage: 300 MG
     Dates: start: 20110418, end: 20110817
  2. FLEXERIL [Concomitant]
     Dates: start: 2008
  3. LIPITOR [Concomitant]
     Dates: start: 2001
  4. XANAX [Concomitant]
     Indication: ANXIETY
     Dates: start: 2008
  5. ZYRTEC [Concomitant]
     Dosage: 10 MG
     Dates: start: 2011
  6. MULTAQ [Concomitant]
  7. POTASSIUM [Concomitant]
     Dosage: 20 MEQ
  8. PAXIL [Concomitant]
     Indication: MUSCLE SPASMS
  9. ASPIRIN [Concomitant]
     Dosage: 81 MG
  10. MECLIZINE [Concomitant]
     Indication: VERTIGO
     Route: 048
  11. COZAAR [Concomitant]
  12. NITROGLYCERIN [Concomitant]
     Indication: CHEST PAIN
     Route: 060
  13. HYDRODIURIL [Concomitant]
  14. COLCHICINE [Concomitant]
     Indication: GOUT
  15. TRAVATAN [Concomitant]

REACTIONS (6)
  - Gastrointestinal haemorrhage [Not Recovered/Not Resolved]
  - Renal failure acute [Unknown]
  - Haemorrhagic anaemia [Unknown]
  - Haemorrhagic stroke [Unknown]
  - Cerebral haemorrhage [Unknown]
  - Epistaxis [Unknown]
